FAERS Safety Report 9728243 (Version 2)
Quarter: 2013Q4

REPORT INFORMATION
  Report Type: Report from Study
  Country: US (occurrence: US)
  Receive Date: 20131204
  Receipt Date: 20131209
  Transmission Date: 20140711
  Serious: Yes (Hospitalization, Disabling, Other)
  Sender: FDA-Public Use
  Company Number: US-JNJFOC-20131200128

PATIENT
  Age: 42 Year
  Sex: Female
  Weight: 134.72 kg

DRUGS (7)
  1. REMICADE [Suspect]
     Indication: PSORIASIS
     Route: 042
     Dates: start: 20130729, end: 20130729
  2. REMICADE [Suspect]
     Indication: PSORIASIS
     Route: 042
     Dates: start: 20130726, end: 20130726
  3. REMICADE [Suspect]
     Indication: PSORIASIS
     Route: 042
     Dates: start: 201302
  4. CORTICOSTEROIDS [Concomitant]
     Route: 061
  5. VITAMIN D [Concomitant]
     Route: 061
  6. ACITRETIN [Concomitant]
     Route: 065
  7. CYCLOSPORINE [Concomitant]
     Route: 065

REACTIONS (2)
  - Infusion related reaction [Recovered/Resolved]
  - Psoriasis [Recovered/Resolved]
